FAERS Safety Report 16087510 (Version 1)
Quarter: 2019Q1

REPORT INFORMATION
  Report Type: Spontaneous
  Country: US (occurrence: US)
  Receive Date: 20190319
  Receipt Date: 20190319
  Transmission Date: 20190418
  Serious: Yes (Other)
  Sender: FDA-Public Use
  Company Number: US-ABBVIE-19S-163-2701811-00

PATIENT
  Age: 62 Year
  Sex: Female
  Weight: 74.46 kg

DRUGS (3)
  1. VICODIN [Suspect]
     Active Substance: ACETAMINOPHEN\HYDROCODONE BITARTRATE
     Indication: PAIN
     Route: 048
  2. EMBEDA [Suspect]
     Active Substance: MORPHINE SULFATE\NALTREXONE HYDROCHLORIDE
     Indication: PAIN
     Dosage: 60MG CAPSULE TWICE A DAY BY MOUTH
     Route: 048
     Dates: start: 201802
  3. OXYCONTIN [Suspect]
     Active Substance: OXYCODONE HYDROCHLORIDE
     Indication: PAIN
     Route: 065

REACTIONS (6)
  - Drug ineffective [Unknown]
  - Cataract [Unknown]
  - Spinal operation [Unknown]
  - Drug ineffective [Not Recovered/Not Resolved]
  - Hip arthroplasty [Unknown]
  - Neck surgery [Unknown]

NARRATIVE: CASE EVENT DATE: 201803
